FAERS Safety Report 6439502-5 (Version None)
Quarter: 2009Q4

REPORT INFORMATION
  Report Type: 
  Country: None (occurrence: None)
  Receive Date: 20091113
  Receipt Date: 20091105
  Transmission Date: 20100525
  Serious: Yes (Death)
  Sender: FDA-Public Use
  Company Number: A0789117A

PATIENT
  Age: 27 Year
  Sex: Female

DRUGS (2)
  1. PROMACTA [Suspect]
     Indication: NON-HODGKIN'S LYMPHOMA
     Dosage: 50MG PER DAY
     Route: 048
     Dates: start: 20081230, end: 20090101
  2. DANAZOL [Concomitant]
     Dates: start: 20081101

REACTIONS (2)
  - IDIOPATHIC THROMBOCYTOPENIC PURPURA [None]
  - NON-HODGKIN'S LYMPHOMA [None]
